FAERS Safety Report 7657992-7 (Version None)
Quarter: 2011Q3

REPORT INFORMATION
  Report Type: 
  Country: None (occurrence: None)
  Receive Date: 20110805
  Receipt Date: 20110801
  Transmission Date: 20111222
  Serious: Yes (Other)
  Sender: FDA-Public Use
  Company Number: AR-AMGEN-ARGSP2011037830

PATIENT
  Age: 47 Year
  Sex: Male
  Weight: 100 kg

DRUGS (1)
  1. ENBREL [Suspect]
     Indication: RHEUMATOID ARTHRITIS
     Dosage: 50 MG, WEEKLY
     Route: 058
     Dates: start: 20091023, end: 20110701

REACTIONS (2)
  - ARTHROPATHY [None]
  - LUNG DISORDER [None]
